FAERS Safety Report 4577990-X (Version None)
Quarter: 2005Q1

REPORT INFORMATION
  Report Type: 
  Country: None (occurrence: None)
  Receive Date: 20050211
  Receipt Date: 20050202
  Transmission Date: 20050727
  Serious: Yes (Death, Hospitalization)
  Sender: FDA-Public Use
  Company Number: FR-JNJFOC-20041203231

PATIENT
  Age: 13 Year
  Sex: Female
  Weight: 30 kg

DRUGS (6)
  1. REMICADE [Suspect]
     Route: 042
  2. REMICADE [Suspect]
     Route: 042
  3. CORTANCYL [Concomitant]
     Route: 042
  4. CORTANCYL [Concomitant]
     Route: 042
  5. CORTANCYL [Concomitant]
     Route: 042
  6. METHOTREXATE [Concomitant]
     Route: 042

REACTIONS (1)
  - ASPERGILLOSIS [None]
